FAERS Safety Report 6655985-X (Version None)
Quarter: 2010Q1

REPORT INFORMATION
  Report Type: 
  Country: None (occurrence: None)
  Receive Date: 20100329
  Receipt Date: 20100317
  Transmission Date: 20100710
  Serious: Yes (Hospitalization, Other)
  Sender: FDA-Public Use
  Company Number: JP-PFIZER INC-2010035632

PATIENT
  Age: 63 Year
  Sex: Female

DRUGS (2)
  1. AZULFIDINE [Suspect]
     Indication: RHEUMATOID ARTHRITIS
     Route: 048
  2. AZULFIDINE [Suspect]
     Indication: INTERSTITIAL LUNG DISEASE

REACTIONS (1)
  - PNEUMONIA [None]
